FAERS Safety Report 8560777-0 (Version None)
Quarter: 2012Q3

REPORT INFORMATION
  Report Type: 
  Country: None (occurrence: None)
  Receive Date: 20120802
  Receipt Date: 20120720
  Transmission Date: 20120928
  Serious: Yes (Hospitalization)
  Sender: FDA-Public Use
  Company Number: FR-PFIZER INC-2012143034

PATIENT
  Age: 49 Year
  Sex: Female
  Weight: 45 kg

DRUGS (3)
  1. TRAMADOL [Concomitant]
     Indication: PAIN
     Dosage: 50 MG, 2X/DAY
     Route: 048
     Dates: start: 20100101
  2. CRIZOTINIB [Suspect]
     Indication: NON-SMALL CELL LUNG CANCER
     Dosage: 200 MG, 2X/DAY
     Route: 048
     Dates: start: 20101019, end: 20120715
  3. FONDAPARINUX SODIUM [Suspect]
     Indication: PULMONARY EMBOLISM
     Dosage: 7.5 MG, 1X/DAY
     Route: 058
     Dates: start: 20100101, end: 20120713

REACTIONS (1)
  - LYMPHADENOPATHY [None]
